FAERS Safety Report 8831433 (Version 1)
Quarter: 2012Q4

REPORT INFORMATION
  Report Type: 
  Country: GR (occurrence: GR)
  Receive Date: 20121008
  Receipt Date: 20121008
  Transmission Date: 20130627
  Serious: Yes (Death, Hospitalization)
  Sender: FDA-Public Use
  Company Number: GR-FRI-1000038906

PATIENT
  Age: 22 Month
  Sex: Female

DRUGS (4)
  1. PROPRANOLOL [Suspect]
  2. ASPIRIN [Suspect]
     Dosage: 100 mg/kg/day
  3. ASPIRIN [Suspect]
     Dosage: 5 mg/kg/day
  4. RANITIDINE [Concomitant]

REACTIONS (5)
  - Myocardial ischaemia [Fatal]
  - Juvenile idiopathic arthritis [Unknown]
  - Abdominal pain [Unknown]
  - Constipation [Unknown]
  - Inflammatory marker increased [Unknown]
